FAERS Safety Report 8274577 (Version 7)
Quarter: 2014Q2

REPORT INFORMATION
  Report Type: Report from Study
  Country: DE (occurrence: DE)
  Receive Date: 20111205
  Receipt Date: 20140625
  Transmission Date: 20141212
  Serious: Yes (Hospitalization)
  Sender: FDA-Public Use
  Company Number: PHHO2011DE019717

PATIENT
  Sex: 0

DRUGS (7)
  1. CGP 57148B [Suspect]
     Indication: PULMONARY ARTERIAL HYPERTENSION
     Dosage: 200 MG, BID
     Route: 048
     Dates: start: 20101112, end: 20111122
  2. MARCUMAR [Concomitant]
     Indication: PULMONARY ARTERIAL HYPERTENSION
     Dosage: AFTER INR
     Route: 048
     Dates: end: 20111123
  3. AQUAPHOR [Concomitant]
     Indication: OEDEMA
     Dosage: 10 MG, BID
     Route: 048
  4. LASIX [Concomitant]
     Indication: OEDEMA
     Dosage: 20 MG, BID
     Route: 048
  5. KALIUM ^VERLA^ [Concomitant]
     Dosage: UNK
  6. SILDENAFIL [Concomitant]
     Indication: PULMONARY ARTERIAL HYPERTENSION
     Dosage: 40 MG, TID
     Route: 048
     Dates: start: 200706
  7. BOSENTAN [Concomitant]
     Indication: PULMONARY ARTERIAL HYPERTENSION
     Dosage: 125 MG, BID
     Route: 048
     Dates: start: 200602

REACTIONS (1)
  - Subdural haematoma [Recovered/Resolved]
